FAERS Safety Report 24227676 (Version 1)
Quarter: 2024Q3

REPORT INFORMATION
  Report Type: Spontaneous
  Country: CN (occurrence: CN)
  Receive Date: 20240820
  Receipt Date: 20240820
  Transmission Date: 20241016
  Serious: Yes (Life-Threatening)
  Sender: MYLAN
  Company Number: CN-MYLANLABS-2024M1076911

PATIENT
  Age: 20 Year
  Sex: Male
  Weight: 70 kg

DRUGS (1)
  1. CELEBREX [Suspect]
     Active Substance: CELECOXIB
     Indication: Analgesic therapy
     Dosage: 0.2 GRAM, QD
     Route: 045
     Dates: start: 20240807, end: 20240807

REACTIONS (1)
  - Electrocardiogram abnormal [Recovered/Resolved]

NARRATIVE: CASE EVENT DATE: 20240807
